FAERS Safety Report 8463043 (Version 4)
Quarter: 2013Q2

REPORT INFORMATION
  Report Type: Report from Study
  Country: SK (occurrence: SK)
  Receive Date: 20120316
  Receipt Date: 20130516
  Transmission Date: 20140414
  Serious: Yes (Death, Hospitalization)
  Sender: FDA-Public Use
  Company Number: PHHO2012SK004052

PATIENT
  Age: 81 Year
  Sex: Female
  Weight: 63 kg

DRUGS (12)
  1. WARFARIN [Suspect]
     Indication: ATRIAL FIBRILLATION
     Dosage: 5 MG, QD
     Dates: start: 20000405
  2. BLINDED ALISKIREN [Suspect]
     Indication: CARDIAC FAILURE
     Dosage: CODE NOT BROKEN
     Route: 048
     Dates: start: 20111219, end: 20130405
  3. BLINDED ENALAPRIL [Suspect]
     Indication: CARDIAC FAILURE
     Dosage: CODE NOT BROKEN
     Route: 048
     Dates: start: 20111219, end: 20130405
  4. BLINDED NO TREATMENT RECEIVED [Suspect]
     Indication: CARDIAC FAILURE
     Dosage: CODE NOT BROKEN
     Route: 048
     Dates: start: 20111219, end: 20130405
  5. URAPIDIL [Concomitant]
     Indication: HYPERTENSION
     Dosage: 60 MG, QD
     Dates: start: 20090129, end: 20120305
  6. URAPIDIL [Concomitant]
     Dosage: 30 MG, QD
     Dates: start: 20120306, end: 20130404
  7. AMLODIPINE [Concomitant]
     Indication: HYPERTENSION
     Dosage: 5 MG, QD
     Dates: start: 20061215, end: 20120309
  8. CARVEDILOL [Concomitant]
     Indication: CARDIAC FAILURE
     Dosage: 12.5 MG, BID
     Route: 048
     Dates: start: 20091023
  9. MONOSAN [Concomitant]
     Indication: MYOCARDIAL ISCHAEMIA
     Dosage: 40 MG, BID
     Route: 048
     Dates: start: 20060217, end: 20130406
  10. VEROSPIRON [Concomitant]
     Indication: CARDIAC FAILURE
     Dosage: 25 MG, QD
     Dates: start: 20120319, end: 20130404
  11. INDAPAMIDE [Concomitant]
     Indication: HYPERTENSION
     Dosage: 1.25 MG, QD
     Dates: start: 20021118
  12. FRAXIPARINE [Concomitant]
     Dosage: UNK

REACTIONS (3)
  - Haemoptysis [Not Recovered/Not Resolved]
  - Hypercoagulation [Not Recovered/Not Resolved]
  - Cardiac failure [Fatal]
